FAERS Safety Report 12731099 (Version 2)
Quarter: 2016Q4

REPORT INFORMATION
  Report Type: Spontaneous
  Country: US (occurrence: US)
  Receive Date: 20160911
  Receipt Date: 20161013
  Transmission Date: 20170207
  Serious: No
  Sender: FDA-Public Use
  Company Number: US-ASTRAZENECA-2016SE92886

PATIENT
  Sex: Female
  Weight: 65.8 kg

DRUGS (1)
  1. SYMBICORT [Suspect]
     Active Substance: BUDESONIDE\FORMOTEROL FUMARATE DIHYDRATE
     Indication: CHRONIC OBSTRUCTIVE PULMONARY DISEASE
     Dosage: 160/4.5MCG, 2 PUFFS TWICE DAILY
     Route: 055
     Dates: start: 201606

REACTIONS (3)
  - Dyspnoea [Unknown]
  - Device issue [Unknown]
  - Intentional device misuse [Unknown]
